FAERS Safety Report 10102243 (Version 2)
Quarter: 2014Q2

REPORT INFORMATION
  Report Type: Report from Study
  Country: GB (occurrence: GB)
  Receive Date: 20140424
  Receipt Date: 20140430
  Transmission Date: 20141212
  Serious: Yes (Hospitalization)
  Sender: FDA-Public Use
  Company Number: GB-PFIZER INC-2014110048

PATIENT
  Age: 54 Year
  Sex: 0
  Weight: 113 kg

DRUGS (1)
  1. AXITINIB [Suspect]
     Indication: METASTATIC RENAL CELL CARCINOMA
     Dosage: 3 MG, 2X/DAY
     Dates: start: 20140210, end: 20140403

REACTIONS (3)
  - Generalised tonic-clonic seizure [Unknown]
  - Pain [Unknown]
  - Lower respiratory tract infection [Unknown]
